FAERS Safety Report 9315960 (Version 2)
Quarter: 2013Q2

REPORT INFORMATION
  Report Type: Spontaneous
  Country: BR (occurrence: BR)
  Receive Date: 20130530
  Receipt Date: 20130618
  Transmission Date: 20140414
  Serious: No
  Sender: FDA-Public Use
  Company Number: BR-BIOGENIDEC-2012BI061961

PATIENT
  Age: 36 Year
  Sex: Female
  Weight: 67 kg

DRUGS (5)
  1. AVONEX [Suspect]
     Indication: MULTIPLE SCLEROSIS
     Route: 030
     Dates: start: 200907, end: 20121107
  2. COMPLEX VITAMIN [Concomitant]
     Indication: PREGNANCY
     Route: 048
     Dates: start: 2012
  3. VITAMIN D [Concomitant]
     Indication: PREGNANCY
     Route: 048
     Dates: start: 2012
  4. SYNTHROID [Concomitant]
     Indication: THYROID DISORDER
     Route: 048
     Dates: start: 2012
  5. FLUOXETINE [Concomitant]
     Indication: DEPRESSION
     Route: 048

REACTIONS (1)
  - No adverse event [Unknown]
